FAERS Safety Report 5570363-2 (Version None)
Quarter: 2007Q4

REPORT INFORMATION
  Report Type: 
  Country: None (occurrence: None)
  Receive Date: 20071221
  Receipt Date: 20071213
  Transmission Date: 20080405
  Serious: Yes (Other)
  Sender: FDA-Public Use
  Company Number: PHEH2007US15862

PATIENT
  Sex: Male

DRUGS (3)
  1. METOPROLOL TARTRATE [Suspect]
     Indication: HYPERTENSION
     Dosage: 25 MG, UNK
  2. DIGOXIN [Suspect]
     Indication: HYPERTENSION
     Dosage: 0.25 MG, UNK
  3. VERAPAMIL [Suspect]
     Indication: HYPERTENSION
     Dosage: 180 MG, UNK

REACTIONS (1)
  - MYOCARDIAL INFARCTION [None]
